FAERS Safety Report 19009393 (Version 1)
Quarter: 2021Q1

REPORT INFORMATION
  Report Type: Spontaneous
  Country: US (occurrence: US)
  Receive Date: 20210316
  Receipt Date: 20210316
  Transmission Date: 20210420
  Serious: Yes (Other)
  Sender: FDA-Public Use
  Company Number: US-SA-2021SA078361

PATIENT
  Age: 84 Year
  Sex: Female

DRUGS (2)
  1. BISACODYL. [Suspect]
     Active Substance: BISACODYL
     Indication: BOWEL PREPARATION
     Dosage: UNK UNK, 1X
  2. MAGNESIUM CITRATE. [Suspect]
     Active Substance: MAGNESIUM CITRATE
     Indication: BOWEL PREPARATION
     Dosage: 300 ML, 1X

REACTIONS (6)
  - Loss of consciousness [Unknown]
  - Skin laceration [Unknown]
  - Diarrhoea [Unknown]
  - Dehydration [Unknown]
  - Fall [Unknown]
  - Blood pressure orthostatic decreased [Recovered/Resolved]
